FAERS Safety Report 14026316 (Version 1)
Quarter: 2017Q3

REPORT INFORMATION
  Report Type: Spontaneous
  Country: RO (occurrence: RO)
  Receive Date: 20170929
  Receipt Date: 20170929
  Transmission Date: 20171128
  Serious: Yes (Other)
  Sender: FDA-Public Use
  Company Number: RO-SHIRE-RO201723876

PATIENT

DRUGS (2)
  1. HUMAN NORMAL IMMUNOGLOBULIN [Suspect]
     Active Substance: HUMAN IMMUNOGLOBULIN G
     Dosage: 1 MCG/ML IGA
     Route: 042
     Dates: end: 2009
  2. HUMAN NORMAL IMMUNOGLOBULIN [Suspect]
     Active Substance: HUMAN IMMUNOGLOBULIN G
     Indication: IMMUNODEFICIENCY COMMON VARIABLE
     Dosage: 200 MCG/ML, 25 MCG/ML IGA CONTENT
     Route: 042
     Dates: end: 2009

REACTIONS (2)
  - Dyspnoea [Unknown]
  - Hypotension [Unknown]
